FAERS Safety Report 9928810 (Version 1)
Quarter: 2014Q1

REPORT INFORMATION
  Report Type: Spontaneous
  Country: NL (occurrence: None)
  Receive Date: 20140225
  Receipt Date: 20140225
  Transmission Date: 20141002
  Serious: Yes (Hospitalization, Other)
  Sender: FDA-Public Use
  Company Number: 2014P1001322

PATIENT
  Age: 62 Year
  Sex: Female

DRUGS (3)
  1. FLUOXETINE [Suspect]
     Dosage: 20 MG; QD;
  2. CODEINE [Suspect]
     Dosage: 15 MG; QD;
  3. TRAMADOL [Suspect]
     Dosage: 100 MG; QD;

REACTIONS (4)
  - Syncope [None]
  - Electrocardiogram QT prolonged [None]
  - Torsade de pointes [None]
  - Ventricular fibrillation [None]
